FAERS Safety Report 7071512-X (Version None)
Quarter: 2010Q4

REPORT INFORMATION
  Report Type: 
  Country: None (occurrence: None)
  Receive Date: 20101029
  Receipt Date: 20090912
  Transmission Date: 20110411
  Serious: No
  Sender: FDA-Public Use
  Company Number: A0807480A

PATIENT
  Sex: Male

DRUGS (1)
  1. ADVAIR DISKUS 100/50 [Suspect]
     Indication: PRODUCT USED FOR UNKNOWN INDICATION
     Route: 055

REACTIONS (3)
  - DRUG ADMINISTRATION ERROR [None]
  - STOMATITIS [None]
  - TONGUE ULCERATION [None]
